FAERS Safety Report 8189475-2 (Version None)
Quarter: 2012Q1

REPORT INFORMATION
  Report Type: 
  Country: None (occurrence: None)
  Receive Date: 20120307
  Receipt Date: 20120305
  Transmission Date: 20120608
  Serious: Yes (Other)
  Sender: FDA-Public Use
  Company Number: US-PFIZER INC-2012058890

PATIENT
  Sex: Female
  Weight: 58.957 kg

DRUGS (5)
  1. NICOTROL [Suspect]
     Dosage: 10 MG TWO TO FIVE CARTRIDGE, DAILY
     Dates: start: 20120101
  2. SIMVASTATIN [Concomitant]
     Indication: BLOOD CHOLESTEROL ABNORMAL
     Dosage: 40 MG, DAILY
  3. NICOTROL [Suspect]
     Indication: SMOKING CESSATION THERAPY
     Dosage: 10 MG SIX CARTRIDGES, DAILY
     Dates: start: 20110701, end: 20120101
  4. BISOPROLOL FUMARATE [Concomitant]
     Indication: BLOOD PRESSURE ABNORMAL
     Dosage: SPLITTING THE 5 MG TABLET, DAILY
     Route: 048
  5. ASPIRIN [Concomitant]
     Dosage: 81 MG, DAILY

REACTIONS (1)
  - DRUG DEPENDENCE [None]
